FAERS Safety Report 8886440 (Version 1)
Quarter: 2012Q4

REPORT INFORMATION
  Report Type: 
  Country: SE (occurrence: SE)
  Receive Date: 20121105
  Receipt Date: 20121105
  Transmission Date: 20130627
  Serious: Yes (Other)
  Sender: FDA-Public Use
  Company Number: PHHY2012SE099839

PATIENT

DRUGS (1)
  1. RITALIN [Suspect]

REACTIONS (1)
  - Hydrocephalus [Unknown]
